FAERS Safety Report 13348281 (Version 1)
Quarter: 2017Q1

REPORT INFORMATION
  Report Type: Spontaneous
  Country: US (occurrence: US)
  Receive Date: 20170319
  Receipt Date: 20170319
  Transmission Date: 20170428
  Serious: No
  Sender: FDA-Public Use
  Company Number: US-009507513-1702USA011121

PATIENT
  Sex: Female
  Weight: 91.16 kg

DRUGS (1)
  1. NEXPLANON [Suspect]
     Active Substance: ETONOGESTREL
     Indication: CONTRACEPTION
     Dosage: 1 IMPLANT
     Route: 059
     Dates: start: 20170214, end: 20170224

REACTIONS (4)
  - Limb discomfort [Recovered/Resolved]
  - Implant site discolouration [Recovered/Resolved]
  - Discomfort [Unknown]
  - Implant site inflammation [Recovering/Resolving]

NARRATIVE: CASE EVENT DATE: 201702
